FAERS Safety Report 7319603-X (Version None)
Quarter: 2011Q1

REPORT INFORMATION
  Report Type: 
  Country: None (occurrence: None)
  Receive Date: 20110228
  Receipt Date: 20100609
  Transmission Date: 20110831
  Serious: No
  Sender: FDA-Public Use
  Company Number: A0864013A

PATIENT
  Sex: Male

DRUGS (4)
  1. MEDICATION FOR HIGH BLOOD PRESSURE [Concomitant]
  2. BENADRYL [Concomitant]
  3. LAMICTAL [Suspect]
     Indication: BIPOLAR DISORDER
     Dosage: 200MG PER DAY
     Route: 048
     Dates: start: 20080101
  4. ANTI-CHOLESTEROL MEDICATION [Concomitant]

REACTIONS (2)
  - RASH [None]
  - PRURITUS [None]
